FAERS Safety Report 7281678-4 (Version None)
Quarter: 2011Q1

REPORT INFORMATION
  Report Type: 
  Country: None (occurrence: None)
  Receive Date: 20110208
  Receipt Date: 20110131
  Transmission Date: 20110831
  Serious: Yes (Hospitalization)
  Sender: FDA-Public Use
  Company Number: US-US-EMD SERONO, INC.-7006923

PATIENT
  Sex: Female

DRUGS (4)
  1. REBIF [Suspect]
     Indication: MULTIPLE SCLEROSIS
     Route: 058
     Dates: start: 20090622
  2. ZANAFLEX [Concomitant]
     Indication: MUSCLE SPASTICITY
     Dates: end: 20100602
  3. ZANAFLEX [Concomitant]
     Dates: start: 20100602
  4. AMPYRA [Concomitant]
     Dates: start: 20100501

REACTIONS (9)
  - BALANCE DISORDER [None]
  - INJECTION SITE REACTION [None]
  - HUMERUS FRACTURE [None]
  - MUSCULOSKELETAL STIFFNESS [None]
  - LACERATION [None]
  - MUSCLE SPASTICITY [None]
  - GAIT DISTURBANCE [None]
  - FALL [None]
  - INFLUENZA LIKE ILLNESS [None]
